FAERS Safety Report 9092372 (Version 1)
Quarter: 2013Q1

REPORT INFORMATION
  Report Type: Report from Study
  Country: FR (occurrence: FR)
  Receive Date: 20130201
  Receipt Date: 20130201
  Transmission Date: 20140127
  Serious: Yes (Life-Threatening, Other)
  Sender: FDA-Public Use
  Company Number: PHHY2012FR025057

PATIENT
  Age: 65 Year
  Sex: Male
  Weight: 73 kg

DRUGS (17)
  1. EVEROLIMUS [Suspect]
     Indication: RENAL CANCER METASTATIC
     Dosage: 10 MG, PER DAY
     Route: 048
     Dates: start: 20110920, end: 20121114
  2. EVEROLIMUS [Suspect]
     Dosage: 5 MG, QD
     Route: 048
     Dates: start: 20111114, end: 20120112
  3. ALDALIX [Concomitant]
     Indication: OEDEMA
     Dosage: 20 MG DAILY, 7 DAYS A MONTH
     Dates: start: 20111017, end: 20111023
  4. ALDALIX [Concomitant]
     Indication: CARDIAC FAILURE
  5. TAHOR [Concomitant]
     Indication: HYPERCHOLESTEROLAEMIA
     Dosage: 20 MG, QD
     Dates: start: 20111212, end: 20120312
  6. XYZALL [Concomitant]
     Dosage: 5 MG, QD
     Dates: start: 20111114, end: 20120214
  7. BICARBONATE [Concomitant]
     Indication: APHTHOUS STOMATITIS
     Dosage: 14 %, 6 TO 8 TIMES DAILY
  8. XYLOCAINE [Concomitant]
     Indication: APHTHOUS STOMATITIS
  9. DEXERYL [Concomitant]
     Indication: DRY SKIN
  10. PARACETAMOL [Concomitant]
     Indication: PAIN
  11. ATARAX [Concomitant]
     Indication: ANXIETY
     Dosage: 25 MG, QD
  12. OROPERIDYS [Concomitant]
     Indication: NAUSEA
     Dosage: 10 MG, 6 TIMES DAILY
  13. SPASFON [Concomitant]
     Indication: ABDOMINAL PAIN
     Dosage: 2 DF, TID
  14. LOPERAMIDE GNR [Concomitant]
     Indication: DIARRHOEA
     Dosage: 2 DF ONCE THEN, 1 DF AFTER EACH SOFT STOOLS UNTIL 6 DF DAILY
  15. SMECTA [Concomitant]
     Indication: DIARRHOEA
     Dosage: 2 DF, TID
  16. INIPOMP [Concomitant]
     Dosage: 20 MG, QD
  17. INNOHEP [Concomitant]
     Indication: COAGULOPATHY
     Dosage: UNK
     Dates: start: 20111111, end: 20111114

REACTIONS (7)
  - Eczema [Recovered/Resolved]
  - Rash [Recovered/Resolved]
  - Blister [Recovered/Resolved]
  - Pruritus generalised [Recovered/Resolved]
  - Eyelid erosion [Recovered/Resolved]
  - Lip ulceration [Recovered/Resolved]
  - Fatigue [Recovered/Resolved]
